FAERS Safety Report 8559722-3 (Version None)
Quarter: 2012Q3

REPORT INFORMATION
  Report Type: 
  Country: None (occurrence: None)
  Receive Date: 20120802
  Receipt Date: 20120731
  Transmission Date: 20120928
  Serious: No
  Sender: FDA-Public Use
  Company Number: US-PFIZER INC-2012147539

PATIENT
  Sex: Female

DRUGS (6)
  1. LYRICA [Suspect]
     Dosage: UNK
  2. BETADINE [Suspect]
     Dosage: UNK
  3. LISINOPRIL [Suspect]
     Dosage: UNK
  4. PREDNISONE [Suspect]
     Dosage: UNK
  5. ZESTRIL [Suspect]
     Dosage: UNK
  6. HYDROCHLOROTHIAZDE TAB [Suspect]
     Dosage: UNK

REACTIONS (1)
  - DRUG HYPERSENSITIVITY [None]
